FAERS Safety Report 8868161 (Version 1)
Quarter: 2012Q4

REPORT INFORMATION
  Report Type: 
  Country: US (occurrence: US)
  Receive Date: 20121025
  Receipt Date: 20121025
  Transmission Date: 20130627
  Serious: No
  Sender: FDA-Public Use
  Company Number: US-AMGEN-USASP2012019244

PATIENT
  Age: 60 Year
  Sex: Female

DRUGS (6)
  1. ENBREL [Suspect]
     Indication: PRODUCT USED FOR UNKNOWN INDICATION
     Dosage: 50 mg, qwk
     Route: 058
  2. PRILOSEC                           /00661201/ [Concomitant]
     Dosage: 10 mg, UNK
  3. CYMBALTA [Concomitant]
     Dosage: 20 mg, UNK
  4. VITAMIN C                          /00008001/ [Concomitant]
     Dosage: 500 mg, UNK
  5. LYRICA [Concomitant]
     Dosage: 100 mg, UNK
  6. NAPRELAN [Concomitant]
     Dosage: 375 mg, UNK

REACTIONS (1)
  - Drug ineffective [Unknown]
